FAERS Safety Report 7310996-6 (Version None)
Quarter: 2011Q1

REPORT INFORMATION
  Report Type: 
  Country: None (occurrence: None)
  Receive Date: 20110210
  Receipt Date: 20110125
  Transmission Date: 20110831
  Serious: Yes (Hospitalization)
  Sender: FDA-Public Use
  Company Number: UTC-004886

PATIENT
  Age: 22 Year
  Sex: Male
  Weight: 72.6 kg

DRUGS (1)
  1. REMODULIN [Suspect]
     Indication: COR PULMONALE CHRONIC
     Dosage: 195.84 UG/KG (0.136 UG/KG, 1 IN 1 MIN), INTRAVENOUS
     Route: 042
     Dates: start: 20100223

REACTIONS (2)
  - DEVICE RELATED INFECTION [None]
  - LOWER RESPIRATORY TRACT INFECTION FUNGAL [None]
